FAERS Safety Report 14620206 (Version 1)
Quarter: 2018Q1

REPORT INFORMATION
  Report Type: Report from Study
  Country: US (occurrence: US)
  Receive Date: 20180309
  Receipt Date: 20180309
  Transmission Date: 20180509
  Serious: Yes (Hospitalization, Other)
  Sender: FDA-Public Use
  Company Number: US-B.I. PHARMACEUTICALS,INC./RIDGEFIELD-2017-BI-031328

PATIENT
  Sex: Male

DRUGS (1)
  1. OFEV [Suspect]
     Active Substance: NINTEDANIB
     Indication: IDIOPATHIC PULMONARY FIBROSIS
     Route: 048
     Dates: start: 20170306

REACTIONS (10)
  - Intestinal haemorrhage [Unknown]
  - Dyspnoea exertional [Unknown]
  - Diarrhoea [Unknown]
  - Bronchitis [Unknown]
  - Cough [Unknown]
  - Diverticulitis [Unknown]
  - Diarrhoea [Recovered/Resolved]
  - Rectal haemorrhage [Unknown]
  - Rhinorrhoea [Unknown]
  - Dyspnoea [Unknown]
